FAERS Safety Report 8880961 (Version 1)
Quarter: 2012Q4

REPORT INFORMATION
  Report Type: 
  Country: BR (occurrence: BR)
  Receive Date: 20121101
  Receipt Date: 20121101
  Transmission Date: 20130627
  Serious: Yes (Other)
  Sender: FDA-Public Use
  Company Number: BR-NOVOPROD-361472

PATIENT
  Sex: Female
  Weight: 89 kg

DRUGS (1)
  1. VICTOZA [Suspect]
     Indication: WEIGHT CONTROL
     Route: 058

REACTIONS (7)
  - Pancreatitis [Unknown]
  - Drug-induced liver injury [Unknown]
  - Somnolence [Unknown]
  - Blood cholesterol increased [Unknown]
  - Constipation [Unknown]
  - Drug ineffective [Unknown]
  - Headache [Unknown]
